FAERS Safety Report 8613256-6 (Version None)
Quarter: 2012Q3

REPORT INFORMATION
  Report Type: 
  Country: None (occurrence: None)
  Receive Date: 20120822
  Receipt Date: 20120802
  Transmission Date: 20120928
  Serious: Yes (Other)
  Sender: FDA-Public Use
  Company Number: JP-009507513-1208JPN001471

PATIENT

DRUGS (7)
  1. TELAVIC [Suspect]
     Indication: HEPATITIS C
     Route: 048
     Dates: start: 20120517, end: 20120620
  2. PEG-INTRON [Suspect]
     Indication: HEPATITIS C
     Dosage: 1.5MCG/KG/WEEK
     Route: 058
     Dates: start: 20120517
  3. REBETOL [Suspect]
     Indication: HEPATITIS C
     Route: 048
     Dates: start: 20120517, end: 20120606
  4. TELAVIC [Suspect]
     Route: 048
     Dates: start: 20120621
  5. REBETOL [Suspect]
     Route: 048
     Dates: start: 20120607, end: 20120627
  6. GLYCYRON [Concomitant]
     Indication: HEPATITIS C
     Route: 048
     Dates: end: 20120613
  7. URSO 250 [Concomitant]
     Indication: HEPATITIS C
     Route: 048
     Dates: end: 20120613

REACTIONS (1)
  - HYPERCREATININAEMIA [None]
